FAERS Safety Report 5758386-1 (Version None)
Quarter: 2008Q2

REPORT INFORMATION
  Report Type: 
  Country: None (occurrence: None)
  Receive Date: 20080602
  Receipt Date: 20080602
  Transmission Date: 20081010
  Serious: Yes (Hospitalization)
  Sender: FDA-Public Use
  Company Number: None

PATIENT
  Age: 87 Year
  Sex: Male
  Weight: 64.55 kg

DRUGS (1)
  1. TERAZOSIN HCL [Suspect]
     Dosage: 1 MG EVERY DAY PO
     Route: 048
     Dates: start: 20070807, end: 20080411

REACTIONS (3)
  - FALL [None]
  - SYNCOPE [None]
  - UNEVALUABLE EVENT [None]
